FAERS Safety Report 22010287 (Version 1)
Quarter: 2023Q1

REPORT INFORMATION
  Report Type: Spontaneous
  Country: JP (occurrence: JP)
  Receive Date: 20230220
  Receipt Date: 20230220
  Transmission Date: 20230418
  Serious: Yes (Other)
  Sender: FDA-Public Use
  Company Number: JP-002147023-NVSJ2023JP003263

PATIENT

DRUGS (1)
  1. ILARIS [Suspect]
     Active Substance: CANAKINUMAB
     Indication: Familial mediterranean fever
     Dosage: UNK
     Route: 065

REACTIONS (5)
  - Melaena [Unknown]
  - Stoma site ulcer [Not Recovered/Not Resolved]
  - Perforation [Unknown]
  - Familial mediterranean fever [Unknown]
  - Condition aggravated [Unknown]
